FAERS Safety Report 9749936 (Version 1)
Quarter: 2013Q4

REPORT INFORMATION
  Report Type: Spontaneous
  Country: US (occurrence: US)
  Receive Date: 20131212
  Receipt Date: 20131212
  Transmission Date: 20140711
  Serious: No
  Sender: FDA-Public Use
  Company Number: US-BAYER-2013-151470

PATIENT
  Age: 53 Year
  Sex: Female

DRUGS (1)
  1. ANGELIQ [Suspect]
     Indication: MENOPAUSE
     Dosage: UNK
     Route: 048
     Dates: start: 2011

REACTIONS (2)
  - Drug dose omission [None]
  - Poor quality sleep [Not Recovered/Not Resolved]
